FAERS Safety Report 4862759-9 (Version None)
Quarter: 2005Q4

REPORT INFORMATION
  Report Type: 
  Country: None (occurrence: None)
  Receive Date: 20051219
  Receipt Date: 20051201
  Transmission Date: 20060501
  Serious: Yes (Hospitalization)
  Sender: FDA-Public Use
  Company Number: 2005BI019337

PATIENT
  Age: 65 Year
  Sex: Male

DRUGS (1)
  1. AVONEX LIQUID [Suspect]
     Indication: MULTIPLE SCLEROSIS
     Dosage: 30 UG; QW; IM
     Route: 030
     Dates: start: 20030917

REACTIONS (5)
  - INGROWING NAIL [None]
  - PAIN IN EXTREMITY [None]
  - POST PROCEDURAL COMPLICATION [None]
  - SKIN DISCOLOURATION [None]
  - VASCULAR OCCLUSION [None]
